FAERS Safety Report 5156365-9 (Version None)
Quarter: 2006Q4

REPORT INFORMATION
  Report Type: 
  Country: None (occurrence: None)
  Receive Date: 20061122
  Receipt Date: 20061120
  Transmission Date: 20070319
  Serious: Yes (Hospitalization)
  Sender: FDA-Public Use
  Company Number: US-GLAXOSMITHKLINE-A0628086A

PATIENT
  Age: 24 Year
  Sex: Male

DRUGS (2)
  1. BC HEADACHE POWDER [Suspect]
     Route: 048
     Dates: start: 20061113, end: 20061101
  2. KEPPRA [Concomitant]

REACTIONS (7)
  - AMNESIA [None]
  - ASPIRATION [None]
  - CONVULSION [None]
  - OVERDOSE [None]
  - PNEUMONIA [None]
  - PYREXIA [None]
  - VOMITING [None]
